APPROVED DRUG PRODUCT: KETOCONAZOLE
Active Ingredient: KETOCONAZOLE
Strength: 2%
Dosage Form/Route: SHAMPOO;TOPICAL
Application: A218498 | Product #001 | TE Code: AB
Applicant: NOVITIUM PHARMA LLC
Approved: Sep 16, 2024 | RLD: No | RS: No | Type: RX